FAERS Safety Report 6130652-X (Version None)
Quarter: 2009Q1

REPORT INFORMATION
  Report Type: 
  Country: None (occurrence: None)
  Receive Date: 20090323
  Receipt Date: 20090308
  Transmission Date: 20090719
  Serious: Yes (Disabling, Other)
  Sender: FDA-Public Use
  Company Number: 2007S1004450

PATIENT
  Sex: Male
  Weight: 83.9154 kg

DRUGS (9)
  1. PHOSPHOSODA FLAVOR NOT SPECIFIED [Suspect]
     Indication: COLONOSCOPY
     Dosage: 90 ML;TOTAL;PO
     Route: 048
     Dates: start: 20030519, end: 20030520
  2. MOTRIN [Concomitant]
  3. LOTENSIN /00909102/ [Concomitant]
  4. LIPITOR [Concomitant]
  5. GLUCOPHAGE [Concomitant]
  6. NOVOLIN /00030501/ [Concomitant]
  7. CARDIZEM [Concomitant]
  8. COZAAR [Concomitant]
  9. ALLEGRA [Concomitant]

REACTIONS (7)
  - DIABETIC NEPHROPATHY [None]
  - HYPOTENSION [None]
  - MEDICATION ERROR [None]
  - NEPHROTIC SYNDROME [None]
  - RENAL FAILURE ACUTE [None]
  - RENAL FAILURE CHRONIC [None]
  - RENAL TUBULAR NECROSIS [None]
